FAERS Safety Report 4724019-6 (Version None)
Quarter: 2005Q3

REPORT INFORMATION
  Report Type: 
  Country: None (occurrence: None)
  Receive Date: 20050722
  Receipt Date: 20050714
  Transmission Date: 20060218
  Serious: Yes (Hospitalization)
  Sender: FDA-Public Use
  Company Number: HQWYE120917NOV03

PATIENT
  Age: 19 Year
  Sex: Male
  Weight: 52 kg

DRUGS (20)
  1. RAPAMUNE [Suspect]
     Indication: IMMUNOSUPPRESSION
     Dosage: 3 MG 2X PER 1 DAY, ORAL
     Route: 048
     Dates: start: 20030112, end: 20040827
  2. RAPAMUNE [Suspect]
     Indication: RENAL TRANSPLANT
     Dosage: 3 MG 2X PER 1 DAY, ORAL
     Route: 048
     Dates: start: 20030112, end: 20040827
  3. PROGRAF [Concomitant]
  4. PREDNISONE [Concomitant]
  5. PROTONIX [Concomitant]
  6. NORVASC [Concomitant]
  7. BACTRIM [Concomitant]
  8. LASIX [Concomitant]
  9. LIPITOR [Concomitant]
  10. FERROUS SULFATE TAB [Concomitant]
  11. MAGNESIUM OXIDE (MAGNESIUM OXIDE) [Concomitant]
  12. POTASSIUM CHLORIDE [Concomitant]
  13. NEPHRO-VITE RX (ASCORBIC ACID/FOLIC ACID/VITAMIN B NOS) [Concomitant]
  14. K-PHOS NEUTRAL (POTASSIUM PHOSPHATE MONOBASIC/SODIUM PHOSPHATE DIBASIC [Concomitant]
  15. AMLODIPINE [Concomitant]
  16. EPOGEN [Concomitant]
  17. METOCLOPRAMIDE [Concomitant]
  18. LACTULOSE [Concomitant]
  19. OMEPRAZOLE [Concomitant]
  20. ZYVOX [Concomitant]

REACTIONS (25)
  - BLOOD GLUCOSE INCREASED [None]
  - CARDIAC MURMUR [None]
  - CARDIOMEGALY [None]
  - CATHETER SEPSIS [None]
  - CHEST X-RAY ABNORMAL [None]
  - CITROBACTER INFECTION [None]
  - COMPUTERISED TOMOGRAM ABNORMAL [None]
  - ELECTROCARDIOGRAM T WAVE AMPLITUDE DECREASED [None]
  - FUNGAL INFECTION [None]
  - HAEMODIALYSIS [None]
  - HYPOTENSION [None]
  - INTERSTITIAL LUNG DISEASE [None]
  - JOINT SWELLING [None]
  - LABILE BLOOD PRESSURE [None]
  - LARYNGEAL STENOSIS [None]
  - OBSTRUCTIVE AIRWAYS DISORDER [None]
  - PHYSICAL EXAMINATION ABNORMAL [None]
  - PLEURAL EFFUSION [None]
  - PO2 INCREASED [None]
  - PULMONARY OEDEMA [None]
  - RENAL TUBULAR NECROSIS [None]
  - RESPIRATORY DISTRESS [None]
  - SINUS TACHYCARDIA [None]
  - SPUTUM CULTURE POSITIVE [None]
  - STAPHYLOCOCCAL INFECTION [None]
